FAERS Safety Report 20456222 (Version 1)
Quarter: 2022Q1

REPORT INFORMATION
  Report Type: Spontaneous
  Country: US (occurrence: US)
  Receive Date: 20220210
  Receipt Date: 20220210
  Transmission Date: 20220423
  Serious: Yes (Death, Other)
  Sender: FDA-Public Use
  Company Number: US-PFIZER INC-202200239694

PATIENT
  Age: 37 Year
  Sex: Male

DRUGS (2)
  1. RAPAMUNE [Suspect]
     Active Substance: SIROLIMUS
     Dosage: 0.5 MG, DAILY [0.5 MG, 90 DAY SUPPLY, TAKE BY MOUTH DAILY]
     Route: 048
  2. RAPAMUNE [Suspect]
     Active Substance: SIROLIMUS
     Dosage: 1 MG, DAILY  [1MG, 90 DAY SUPPLY, QTY 90]
     Route: 048

REACTIONS (1)
  - Death [Fatal]
